FAERS Safety Report 8538716 (Version 5)
Quarter: 2013Q2

REPORT INFORMATION
  Report Type: Report from Study
  Country: US (occurrence: US)
  Receive Date: 20120501
  Receipt Date: 20130405
  Transmission Date: 20140414
  Serious: Yes (Life-Threatening, Hospitalization)
  Sender: FDA-Public Use
  Company Number: US-ROCHE-1063682

PATIENT
  Age: 48 Year
  Sex: Female
  Weight: 57.6 kg

DRUGS (12)
  1. TRASTUZUMAB [Suspect]
     Dosage: MAINTANANCE DOSE, TEMPORARILY INTERRUPTED
     Route: 042
     Dates: end: 20120504
  2. TRASTUZUMAB [Suspect]
     Dosage: PERMANENTLY DISCONTINUED
     Route: 042
     Dates: end: 20120525
  3. DOCETAXEL [Suspect]
     Indication: BREAST CANCER
     Route: 042
     Dates: start: 20120413, end: 20120504
  4. DOCETAXEL [Suspect]
     Route: 042
     Dates: end: 20120525
  5. CARBOPLATIN [Suspect]
     Indication: BREAST CANCER
     Dosage: TEMPORARILY DISCONTINUED
     Route: 042
     Dates: start: 20120413, end: 20120504
  6. CARBOPLATIN [Suspect]
     Route: 042
     Dates: end: 20120525
  7. CLINDAMYCIN [Concomitant]
     Route: 065
     Dates: start: 20120326
  8. OMEGA 3 [Concomitant]
     Route: 065
     Dates: start: 20120402
  9. TYLENOL/CODEINE [Concomitant]
     Route: 065
     Dates: start: 20120326
  10. ZOFRAN [Concomitant]
     Route: 065
     Dates: start: 20120413
  11. PERTUZUMAB [Suspect]
     Indication: BREAST CANCER
     Dosage: LOADING DOSE
     Route: 042
     Dates: start: 20120413, end: 20120525
  12. TRASTUZUMAB [Suspect]
     Indication: BREAST CANCER
     Dosage: LOADING DOSE
     Route: 042
     Dates: start: 20120413

REACTIONS (3)
  - Disseminated intravascular coagulation [Recovered/Resolved]
  - Diarrhoea [Recovered/Resolved]
  - Febrile neutropenia [Recovered/Resolved]
